FAERS Safety Report 7108622 (Version 6)
Quarter: 2013Q4

REPORT INFORMATION
  Report Type: Spontaneous
  Country: DK (occurrence: DK)
  Receive Date: 20090909
  Receipt Date: 20131224
  Transmission Date: 20140711
  Serious: Yes (Disabling)
  Sender: FDA-Public Use
  Company Number: DK-BRACCO-000035

PATIENT
  Age: 58 Year
  Sex: Male
  Weight: 60 kg

DRUGS (5)
  1. OMNISCAN [Suspect]
     Indication: ANGIOGRAM
     Dosage: 0.5 MILLIMOLE(S)/ML
     Route: 042
     Dates: start: 20050816, end: 20050816
  2. MULTIHANCE [Suspect]
     Indication: VENOGRAM
     Route: 042
     Dates: start: 20030429, end: 20030429
  3. MULTIHANCE [Suspect]
     Indication: ARTERIOGRAM RENAL
     Route: 042
     Dates: start: 20040310, end: 20040310
  4. MULTIHANCE [Suspect]
     Route: 042
     Dates: start: 20030423, end: 20030423
  5. MULTIHANCE [Suspect]
     Route: 042
     Dates: start: 20040316, end: 20040316

REACTIONS (1)
  - Nephrogenic systemic fibrosis [Not Recovered/Not Resolved]
